FAERS Safety Report 9560385 (Version 1)
Quarter: 2013Q3

REPORT INFORMATION
  Report Type: Spontaneous
  Country: US (occurrence: None)
  Receive Date: 20130906
  Receipt Date: 20130906
  Transmission Date: 20140515
  Serious: Yes (Other)
  Sender: FDA-Public Use
  Company Number: 163-POMAL-13050202

PATIENT
  Age: 61 Year
  Sex: Female
  Weight: 83.92 kg

DRUGS (6)
  1. POMALYST [Suspect]
     Indication: PLASMA CELL MYELOMA
     Dosage: 4 MG, CAPSULE, 21 IN 21 D, PO
     Dates: start: 20130407
  2. ASPIRIN (ACETYLSALICYLIC ACID) [Concomitant]
  3. DEXAMETHASONE [Concomitant]
  4. SPIRONOLACTONE [Concomitant]
  5. VERAPAMIL [Concomitant]
  6. VYTORIN (INEGY) [Concomitant]

REACTIONS (3)
  - Swelling face [None]
  - Rash pruritic [None]
  - Dizziness [None]
